FAERS Safety Report 7203719-2 (Version None)
Quarter: 2010Q4

REPORT INFORMATION
  Report Type: 
  Country: None (occurrence: None)
  Receive Date: 20101230
  Receipt Date: 20101229
  Transmission Date: 20110411
  Serious: Yes (Other)
  Sender: FDA-Public Use
  Company Number: CN-PFIZER INC-2010180740

PATIENT

DRUGS (1)
  1. VFEND [Suspect]
     Indication: LUNG INFECTION

REACTIONS (3)
  - BLOOD ALBUMIN DECREASED [None]
  - GENERALISED OEDEMA [None]
  - PLEURAL EFFUSION [None]
